FAERS Safety Report 4508962-9 (Version None)
Quarter: 2004Q4

REPORT INFORMATION
  Report Type: 
  Country: None (occurrence: None)
  Receive Date: 20041122
  Receipt Date: 20041122
  Transmission Date: 20050328
  Serious: Yes (Other)
  Sender: FDA-Public Use
  Company Number: None

PATIENT
  Age: 34 Year
  Sex: Male

DRUGS (1)
  1. PAXIL [Suspect]
     Dosage: 40 MG QHS

REACTIONS (9)
  - AGITATION [None]
  - CEREBRAL DISORDER [None]
  - HEADACHE [None]
  - HYPERSENSITIVITY [None]
  - NIGHTMARE [None]
  - PHARMACEUTICAL PRODUCT COMPLAINT [None]
  - SOMNOLENCE [None]
  - THINKING ABNORMAL [None]
  - UNEVALUABLE EVENT [None]
